FAERS Safety Report 17771067 (Version 1)
Quarter: 2020Q2

REPORT INFORMATION
  Report Type: Spontaneous
  Country: NO (occurrence: NO)
  Receive Date: 20200512
  Receipt Date: 20200512
  Transmission Date: 20200714
  Serious: Yes (Hospitalization, Other)
  Sender: FDA-Public Use
  Company Number: NO-AMGEN-NORSP2020073376

PATIENT
  Age: 28 Year
  Sex: Female

DRUGS (6)
  1. DARBEPOETIN ALFA [Suspect]
     Active Substance: DARBEPOETIN ALFA
     Indication: ERYTHROPOIESIS ABNORMAL
     Dosage: 200 MILLIGRAM, QOD
     Route: 058
  2. RITUXIMAB. [Concomitant]
     Active Substance: RITUXIMAB
     Dosage: 1000 MILLIGRAM
     Route: 042
  3. RED BLOOD CELLS [Concomitant]
     Active Substance: HUMAN RED BLOOD CELL
     Indication: HAEMOGLOBIN DECREASED
  4. HYDROXYUREA. [Concomitant]
     Active Substance: HYDROXYUREA
     Indication: RED BLOOD CELL COUNT ABNORMAL
  5. METHYLPREDNISOLONE. [Concomitant]
     Active Substance: METHYLPREDNISOLONE
     Dosage: 500 MILLIGRAM, QD
  6. ECULIZUMAB [Concomitant]
     Active Substance: ECULIZUMAB
     Dosage: 900 MILLIGRAM
     Route: 042

REACTIONS (2)
  - Osteonecrosis [Recovering/Resolving]
  - Off label use [Unknown]
